FAERS Safety Report 13237125 (Version 2)
Quarter: 2017Q2

REPORT INFORMATION
  Report Type: Spontaneous
  Country: FR (occurrence: FR)
  Receive Date: 20170215
  Receipt Date: 20170626
  Transmission Date: 20170830
  Serious: Yes (Disabling)
  Sender: FDA-Public Use
  Company Number: FR-MYLANLABS-2017M1009243

PATIENT

DRUGS (3)
  1. BLEU DE METHYLENE [Suspect]
     Active Substance: METHYLENE BLUE ANHYDROUS
     Indication: ENCEPHALOPATHY
     Dosage: 4 DF, QD
     Route: 042
     Dates: start: 20161223, end: 20161223
  2. ETOPOSIDE MYLAN 20 MG/ML, SOLUTION ? DILUER POUR PERFUSION [Suspect]
     Active Substance: ETOPOSIDE
     Indication: OSTEOSARCOMA
     Dosage: UNK
     Route: 042
     Dates: start: 20161125
  3. HOLOXAN [Suspect]
     Active Substance: IFOSFAMIDE
     Indication: OSTEOSARCOMA
     Dosage: 5300 MG, UNK
     Route: 042
     Dates: start: 20161125, end: 20161222

REACTIONS (2)
  - Neuralgia [Not Recovered/Not Resolved]
  - Paraesthesia [Not Recovered/Not Resolved]

NARRATIVE: CASE EVENT DATE: 20161224
